FAERS Safety Report 9395188 (Version 1)
Quarter: 2013Q3

REPORT INFORMATION
  Report Type: Spontaneous
  Country: US (occurrence: US)
  Receive Date: 20130711
  Receipt Date: 20130711
  Transmission Date: 20140515
  Serious: No
  Sender: FDA-Public Use
  Company Number: US-ASTELLAS-2013US004430

PATIENT
  Age: 71 Year
  Sex: Female
  Weight: 96 kg

DRUGS (3)
  1. MYRBETRIQ [Suspect]
     Indication: HYPERTONIC BLADDER
     Dosage: 25 MG, UID/QD
     Route: 048
     Dates: start: 20130331, end: 20130413
  2. MYRBETRIQ [Suspect]
     Dosage: 50 MG, UID/QD
     Route: 048
     Dates: start: 20130414
  3. UNSPECIFIED MEDICATIONS [Concomitant]

REACTIONS (2)
  - Alopecia [Unknown]
  - Rhinorrhoea [Unknown]
